FAERS Safety Report 15580615 (Version 2)
Quarter: 2018Q4

REPORT INFORMATION
  Report Type: Spontaneous
  Country: US (occurrence: US)
  Receive Date: 20181102
  Receipt Date: 20181105
  Transmission Date: 20190205
  Serious: Yes (Life-Threatening)
  Sender: FDA-Public Use
  Company Number: US-MIST-TIR-2018-0368

PATIENT
  Age: 34 Year
  Sex: Female
  Weight: 63.56 kg

DRUGS (3)
  1. TIROSINT [Suspect]
     Active Substance: LEVOTHYROXINE SODIUM
     Dosage: 150MCG DAILY
     Route: 048
     Dates: start: 201804
  2. TIROSINT [Suspect]
     Active Substance: LEVOTHYROXINE SODIUM
     Dosage: 150MCG DAILY
     Route: 048
     Dates: start: 2018
  3. TIROSINT [Suspect]
     Active Substance: LEVOTHYROXINE SODIUM
     Indication: THYROIDECTOMY
     Dosage: 150MCG DAILY
     Route: 048
     Dates: start: 2013, end: 201804

REACTIONS (10)
  - Product colour issue [Unknown]
  - Fatigue [Unknown]
  - Heart rate decreased [Unknown]
  - Product physical consistency issue [Unknown]
  - Hypothyroidism [Unknown]
  - Thyroid function test abnormal [Unknown]
  - Product size issue [Unknown]
  - Product quality issue [Unknown]
  - Drug ineffective [Unknown]
  - Product taste abnormal [Unknown]

NARRATIVE: CASE EVENT DATE: 201804
